FAERS Safety Report 8263067-9 (Version None)
Quarter: 2012Q2

REPORT INFORMATION
  Report Type: 
  Country: None (occurrence: None)
  Receive Date: 20120405
  Receipt Date: 20120328
  Transmission Date: 20120825
  Serious: Yes (Life-Threatening, Hospitalization, Other)
  Sender: FDA-Public Use
  Company Number: US-ACTELION-A-US2011-55305

PATIENT

DRUGS (17)
  1. EPOPROSTENOL SODIUM [Suspect]
     Dosage: 13 NG/KG, PER MIN
     Route: 042
  2. COMBIVENT [Concomitant]
  3. NEXIUM [Concomitant]
  4. OXYCODONE HCL [Concomitant]
  5. ZOLOFT [Concomitant]
  6. SILDENAFIL [Concomitant]
  7. VITAMIN A [Concomitant]
  8. FLEXERIL [Concomitant]
  9. ALDACTONE [Concomitant]
  10. CALCIUM CARBONATE [Concomitant]
  11. ALLEGRA [Concomitant]
  12. FUROSEMIDE [Concomitant]
  13. LACTULOSE [Concomitant]
  14. ZINC SULFATE [Concomitant]
  15. EPOPROSTENOL SODIUM [Suspect]
     Dosage: 11 NG/KG, PER MIN
     Route: 042
     Dates: start: 20120101
  16. MULTI-VITAMIN [Concomitant]
  17. EPOPROSTENOL SODIUM [Suspect]
     Indication: PULMONARY ARTERIAL HYPERTENSION
     Dosage: 2 NG/KG, PER MIN
     Route: 042
     Dates: start: 20110721

REACTIONS (19)
  - STAPHYLOCOCCAL INFECTION [None]
  - BLOOD POTASSIUM DECREASED [None]
  - DELIRIUM [None]
  - SPINAL COMPRESSION FRACTURE [None]
  - PRODUCTIVE COUGH [None]
  - HEADACHE [None]
  - CATHETER SITE DISCHARGE [None]
  - BLOOD MAGNESIUM DECREASED [None]
  - HYPERHIDROSIS [None]
  - FLUSHING [None]
  - PAIN [None]
  - CHILLS [None]
  - CATHETER SITE INFECTION [None]
  - CATHETER SITE INFLAMMATION [None]
  - DEVICE RELATED INFECTION [None]
  - DIARRHOEA [None]
  - CATHETER SITE ERYTHEMA [None]
  - BLOOD CULTURE POSITIVE [None]
  - AGITATION [None]
